FAERS Safety Report 9645156 (Version 1)
Quarter: 2013Q4

REPORT INFORMATION
  Report Type: Spontaneous
  Country: US (occurrence: None)
  Receive Date: 20131023
  Receipt Date: 20131023
  Transmission Date: 20140711
  Serious: Yes (Hospitalization)
  Sender: FDA-Public Use
  Company Number: None

PATIENT
  Age: 59 Year
  Sex: Female
  Weight: 62.8 kg

DRUGS (1)
  1. TECFIDERA, 240 MG, BIOGEN IDEC [Suspect]
     Indication: MULTIPLE SCLEROSIS
     Route: 048
     Dates: start: 20130801, end: 20130925

REACTIONS (10)
  - Leukopenia [None]
  - Urinary tract infection [None]
  - Stenotrophomonas test positive [None]
  - Escherichia test positive [None]
  - Nausea [None]
  - Vomiting [None]
  - Chills [None]
  - Hypotension [None]
  - Pyrexia [None]
  - Tachycardia [None]
